FAERS Safety Report 9350417 (Version 1)
Quarter: 2013Q2

REPORT INFORMATION
  Report Type: Spontaneous
  Country: US (occurrence: US)
  Receive Date: 20130617
  Receipt Date: 20130617
  Transmission Date: 20140414
  Serious: No
  Sender: FDA-Public Use
  Company Number: US-PFIZER INC-2013178557

PATIENT
  Sex: Male

DRUGS (2)
  1. PRISTIQ [Suspect]
     Indication: ANXIETY
     Dosage: 50 MG, UNK
  2. PRISTIQ [Suspect]
     Indication: DEPRESSION

REACTIONS (10)
  - Nightmare [Unknown]
  - Dry mouth [Unknown]
  - Constipation [Unknown]
  - Confusional state [Unknown]
  - Feeling abnormal [Unknown]
  - Insomnia [Unknown]
  - Tachyphrenia [Unknown]
  - Abnormal dreams [Unknown]
  - Drug prescribing error [Unknown]
  - Drug administration error [Unknown]
